FAERS Safety Report 9272368 (Version 1)
Quarter: 2013Q2

REPORT INFORMATION
  Report Type: Spontaneous
  Country: US (occurrence: US)
  Receive Date: 20130506
  Receipt Date: 20130506
  Transmission Date: 20140414
  Serious: No
  Sender: FDA-Public Use
  Company Number: US-ASTRAZENECA-2012SE90922

PATIENT
  Sex: Female

DRUGS (3)
  1. PRILOSEC [Suspect]
     Route: 048
     Dates: start: 20121125, end: 20121125
  2. ANTIHYPERTENSIVES [Concomitant]
     Dosage: UNKNOWN
  3. CHOLESTEROL- AND TRIGLYCERIDE REDUCERS [Concomitant]
     Dosage: UNKNOWN

REACTIONS (2)
  - Pharyngeal disorder [Recovered/Resolved]
  - Dysgeusia [Recovered/Resolved]
